FAERS Safety Report 8087115-4 (Version None)
Quarter: 2012Q1

REPORT INFORMATION
  Report Type: 
  Country: None (occurrence: None)
  Receive Date: 20120130
  Receipt Date: 20120119
  Transmission Date: 20120608
  Serious: Yes (Other)
  Sender: FDA-Public Use
  Company Number: JP-BRISTOL-MYERS SQUIBB COMPANY-16355356

PATIENT
  Age: 29 Year
  Sex: Male

DRUGS (2)
  1. ABILIFY [Suspect]
     Indication: SCHIZOPHRENIA
     Dosage: INCREASED TO 30MG ON 25TH DAY,DECREASED,DISCONTINUED ON 38TH DAY
     Route: 048
  2. HALOPERIDOL [Concomitant]
     Dosage: MONOTHERAPY,HPD INJ
     Route: 042

REACTIONS (1)
  - PSYCHIATRIC SYMPTOM [None]
